FAERS Safety Report 7459472-0 (Version None)
Quarter: 2011Q2

REPORT INFORMATION
  Report Type: 
  Country: None (occurrence: None)
  Receive Date: 20110505
  Receipt Date: 20110504
  Transmission Date: 20111010
  Serious: Yes (Other)
  Sender: FDA-Public Use
  Company Number: IT-SANOFI-AVENTIS-2011SA027293

PATIENT
  Age: 93 Year
  Sex: Female

DRUGS (3)
  1. LASIX [Suspect]
     Route: 048
     Dates: start: 20010424, end: 20110424
  2. ALDACTONE [Suspect]
     Route: 048
     Dates: start: 20010424, end: 20110424
  3. KEPPRA [Concomitant]
     Route: 048

REACTIONS (2)
  - SYNCOPE [None]
  - HYPOTENSION [None]
